FAERS Safety Report 8850625 (Version 2)
Quarter: 2012Q4

REPORT INFORMATION
  Report Type: 
  Country: CH (occurrence: CH)
  Receive Date: 20121019
  Receipt Date: 20121214
  Transmission Date: 20130627
  Serious: Yes (Life-Threatening, Hospitalization, Other)
  Sender: FDA-Public Use
  Company Number: CH-009507513-1210CHE006321

PATIENT
  Age: 75 Year
  Sex: Male

DRUGS (6)
  1. REMERON [Suspect]
     Dosage: 15 mg, qd
     Route: 048
     Dates: start: 20120427, end: 20120430
  2. REMERON [Suspect]
     Dosage: 30 mg, qd
     Route: 048
     Dates: start: 20120501, end: 20120515
  3. REMERON [Suspect]
     Dosage: 45 mg, qd
     Route: 048
     Dates: start: 20120516, end: 20120521
  4. TEMESTA [Suspect]
     Dosage: 2 to 3 mg, qd
     Route: 048
     Dates: start: 20120428, end: 20120521
  5. INDAPAMIDE [Concomitant]
     Dosage: 2.5 mg, qd
     Route: 048
     Dates: start: 20120425
  6. AMLODIPINE [Concomitant]
     Dosage: 5 mg, qd
     Route: 048
     Dates: start: 20120425, end: 20120521

REACTIONS (3)
  - Suicide attempt [Not Recovered/Not Resolved]
  - Sedation [Unknown]
  - Fatigue [Unknown]
